FAERS Safety Report 22621268 (Version 1)
Quarter: 2023Q2

REPORT INFORMATION
  Report Type: Report from Study
  Country: GB (occurrence: GB)
  Receive Date: 20230620
  Receipt Date: 20230620
  Transmission Date: 20230722
  Serious: Yes (Hospitalization)
  Sender: FDA-Public Use
  Company Number: GB-MYLANLABS-2023M1064688

PATIENT
  Age: 42 Year
  Sex: Male

DRUGS (4)
  1. BUPRENORPHINE [Suspect]
     Active Substance: BUPRENORPHINE
     Indication: Product used for unknown indication
     Dosage: UNK
     Route: 065
  2. DIAZEPAM [Suspect]
     Active Substance: DIAZEPAM
     Indication: Product used for unknown indication
     Dosage: UNK
     Route: 048
  3. METHADONE [Suspect]
     Active Substance: METHADONE HYDROCHLORIDE
     Indication: Product used for unknown indication
     Dosage: UNK
     Route: 065
  4. ETIZOLAM [Suspect]
     Active Substance: ETIZOLAM
     Indication: Product used for unknown indication
     Dosage: UNK
     Route: 065

REACTIONS (4)
  - Intentional product misuse [Recovering/Resolving]
  - Depressed level of consciousness [Recovering/Resolving]
  - Hypothermia [Recovering/Resolving]
  - Confusional state [Recovering/Resolving]
